FAERS Safety Report 8613340-7 (Version None)
Quarter: 2012Q3

REPORT INFORMATION
  Report Type: 
  Country: None (occurrence: None)
  Receive Date: 20120822
  Receipt Date: 20120314
  Transmission Date: 20120928
  Serious: Yes (Hospitalization, Other)
  Sender: FDA-Public Use
  Company Number: JP-009507513-1208JPN006905

PATIENT

DRUGS (7)
  1. PEG-INTRON [Suspect]
     Indication: HEPATITIS C
     Dosage: 1.5MCG/KG/WEEK
     Route: 058
     Dates: start: 20120117, end: 20120221
  2. REBETOL [Suspect]
     Dosage: 400 MG, ONCE
     Route: 048
     Dates: start: 20120207, end: 20120213
  3. REBETOL [Suspect]
     Route: 048
     Dates: start: 20120214, end: 20120228
  4. REBETOL [Suspect]
     Indication: HEPATITIS C
     Dosage: 800 MG, ONCE
     Route: 048
     Dates: start: 20120117, end: 20120206
  5. MAGMITT [Concomitant]
     Indication: CONSTIPATION
     Dosage: 330MG/DAY, AS NEEDED
     Route: 048
     Dates: start: 20120214
  6. TELAVIC [Suspect]
     Indication: HEPATITIS C
     Dosage: 2250 MG, ONCE
     Route: 048
     Dates: start: 20120117, end: 20120228
  7. ALLOPURINOL [Suspect]
     Dosage: 100 MG, ONCE
     Route: 048
     Dates: end: 20120306

REACTIONS (5)
  - STOMATITIS [None]
  - PYREXIA [None]
  - RASH [None]
  - ANAEMIA [None]
  - DRUG RASH WITH EOSINOPHILIA AND SYSTEMIC SYMPTOMS [None]
